FAERS Safety Report 7757354-8 (Version None)
Quarter: 2011Q3

REPORT INFORMATION
  Report Type: 
  Country: None (occurrence: None)
  Receive Date: 20110916
  Receipt Date: 20110912
  Transmission Date: 20111222
  Serious: Yes (Hospitalization)
  Sender: FDA-Public Use
  Company Number: FR-PFIZER INC-2011213422

PATIENT
  Age: 91 Year
  Sex: Female

DRUGS (12)
  1. CALCIUM W/COLECALCIFEROL (EPTAVIT) [Suspect]
     Dosage: 1000MG/880 UI EFFERVESCENT
     Route: 048
     Dates: end: 20110817
  2. FLUTICASONE PROPIONATE/SALMETEROL [Suspect]
     Dosage: UNK
     Route: 055
     Dates: end: 20110817
  3. ASPIRIN [Concomitant]
     Dosage: 75 MG, UNK
  4. MEMANTINE [Suspect]
     Dosage: 10 MG, 1X/DAY
     Route: 048
     Dates: end: 20110817
  5. ARICEPT [Concomitant]
  6. LEVOTHYROXINE SODIUM [Concomitant]
  7. FORLAX [Suspect]
     Dosage: 4000, 2 DF
     Route: 048
     Dates: end: 20110817
  8. MONURIL ^APOGEPHA^ [Suspect]
     Dosage: 3 G, 1X/DAY
     Route: 048
     Dates: start: 20110330, end: 20110817
  9. XANAX [Suspect]
     Dosage: 0.25MG, 1/2 TABLET DAILY
     Route: 048
     Dates: end: 20110817
  10. BACTRIM DS [Suspect]
     Dosage: 2 TABLETS TWICE WEEKLY
     Route: 048
     Dates: start: 20110330, end: 20110817
  11. VENTOLIN [Concomitant]
  12. LASIX [Concomitant]

REACTIONS (6)
  - PANCREATIC ENZYMES INCREASED [None]
  - DYSPNOEA [None]
  - VOMITING [None]
  - BLOOD AMYLASE INCREASED [None]
  - LIPASE INCREASED [None]
  - MALAISE [None]
